FAERS Safety Report 9635532 (Version 1)
Quarter: 2013Q4

REPORT INFORMATION
  Report Type: Spontaneous
  Country: US (occurrence: US)
  Receive Date: 20131021
  Receipt Date: 20131021
  Transmission Date: 20140711
  Serious: No
  Sender: FDA-Public Use
  Company Number: US-PURDUE-USA-2013-0103456

PATIENT
  Sex: Male

DRUGS (4)
  1. BUTRANS [Suspect]
     Indication: PAIN
     Route: 062
  2. HYDROCODONE FILM-COATED TAB (59,175) [Suspect]
     Indication: BREAKTHROUGH PAIN
     Dosage: 5 MG, AM
     Route: 048
  3. HYDROCODONE FILM-COATED TAB (59,175) [Suspect]
     Dosage: 5 MG, AT LUNCH
     Route: 048
  4. HYDROCODONE FILM-COATED TAB (59,175) [Suspect]
     Dosage: 5 MG, AT LUNCH
     Route: 048

REACTIONS (1)
  - Somnolence [Recovered/Resolved]
